FAERS Safety Report 5819313-1 (Version None)
Quarter: 2008Q3

REPORT INFORMATION
  Report Type: 
  Country: None (occurrence: None)
  Receive Date: 20080723
  Receipt Date: 20080711
  Transmission Date: 20090109
  Serious: Yes (Other)
  Sender: FDA-Public Use
  Company Number: US-MERCK-0807USA02962M

PATIENT
  Age: 34 Year
  Sex: Female

DRUGS (6)
  1. SINGULAIR [Suspect]
     Route: 048
     Dates: end: 20030101
  2. ACIPHEX [Concomitant]
     Route: 065
     Dates: start: 20021025, end: 20021028
  3. APRODINE [Concomitant]
     Route: 065
     Dates: start: 20020916, end: 20020920
  4. TETANUS TOXOID [Concomitant]
     Route: 065
     Dates: start: 20021015
  5. INFLUENZA VIRUS VACCINE (UNSPECIFIED) [Concomitant]
     Route: 065
     Dates: start: 20021015
  6. PNEUMOVAX 23 [Concomitant]
     Route: 065
     Dates: start: 20021015

REACTIONS (4)
  - ADVERSE EVENT [None]
  - BLOOD PRESSURE INCREASED [None]
  - BRONCHITIS [None]
  - DRUG EXPOSURE DURING PREGNANCY [None]
